FAERS Safety Report 8174139-1 (Version None)
Quarter: 2012Q1

REPORT INFORMATION
  Report Type: 
  Country: None (occurrence: None)
  Receive Date: 20120229
  Receipt Date: 20120224
  Transmission Date: 20120608
  Serious: Yes (Other)
  Sender: FDA-Public Use
  Company Number: DE-B.I. PHARMACEUTICALS,INC./RIDGEFIELD-2011-DE-06916DE

PATIENT
  Sex: Male
  Weight: 80 kg

DRUGS (6)
  1. THOREM [Concomitant]
  2. PANTOPRAZOLE [Concomitant]
     Dosage: 40 NR
     Route: 048
  3. PRADAXA [Suspect]
     Indication: ATRIAL FIBRILLATION
     Dosage: 300 MG
     Route: 048
     Dates: start: 20111208, end: 20111222
  4. ASPIRIN [Concomitant]
  5. BISOPROLOL [Concomitant]
     Dosage: 5 NR
     Route: 048
  6. TAMSULOSIN HCL [Concomitant]
     Route: 048

REACTIONS (4)
  - HAEMOGLOBIN DECREASED [None]
  - ACTIVATED PARTIAL THROMBOPLASTIN TIME [None]
  - THROMBOCYTOPENIA [None]
  - THROMBIN TIME PROLONGED [None]
